FAERS Safety Report 5069894-3 (Version None)
Quarter: 2006Q3

REPORT INFORMATION
  Report Type: 
  Country: None (occurrence: None)
  Receive Date: 20060803
  Receipt Date: 20060713
  Transmission Date: 20061208
  Serious: Yes (Hospitalization, Other)
  Sender: FDA-Public Use
  Company Number: PHFR2006GB02231

PATIENT
  Age: 68 Year
  Sex: Male

DRUGS (6)
  1. ZOMETA [Suspect]
     Indication: METASTASES TO BONE
     Dosage: 4MG / 3 DOSES
     Route: 042
     Dates: start: 20060502, end: 20060530
  2. ZOMETA [Suspect]
     Dosage: 4MG
     Route: 042
     Dates: start: 20060707
  3. IBUPROFEN [Concomitant]
     Indication: PAIN
     Dosage: 400MG/DAY
     Route: 048
  4. ACETAMINOPHEN [Concomitant]
     Dosage: 1G/DAY
     Route: 048
  5. ZOPICLONE [Concomitant]
     Indication: SLEEP DISORDER
     Dosage: 3.75MG/DAY
     Route: 048
  6. ORAMORPH SR [Concomitant]
     Indication: PAIN
     Dosage: 10MG/DAY
     Route: 048

REACTIONS (8)
  - ABNORMAL BEHAVIOUR [None]
  - AGGRESSION [None]
  - EATING DISORDER [None]
  - FLIGHT OF IDEAS [None]
  - HAEMOGLOBIN ABNORMAL [None]
  - INSOMNIA [None]
  - PSYCHOTIC DISORDER [None]
  - WHITE BLOOD CELL DISORDER [None]
